FAERS Safety Report 5130345-1 (Version None)
Quarter: 2006Q4

REPORT INFORMATION
  Report Type: 
  Country: None (occurrence: None)
  Receive Date: 20061019
  Receipt Date: 20060925
  Transmission Date: 20070319
  Serious: Yes (Death, Hospitalization)
  Sender: FDA-Public Use
  Company Number: PHHO2006JP16078

PATIENT
  Sex: Male
  Weight: 78 kg

DRUGS (3)
  1. DIOVAN [Suspect]
     Indication: HYPERTENSION
     Dosage: 80 MG, QD
     Route: 048
     Dates: start: 20030430, end: 20050625
  2. NORVASC [Concomitant]
  3. EUGLUCON [Concomitant]

REACTIONS (1)
  - GASTRIC CANCER [None]
